FAERS Safety Report 11864707 (Version 4)
Quarter: 2016Q1

REPORT INFORMATION
  Report Type: Spontaneous
  Country: JP (occurrence: JP)
  Receive Date: 20151223
  Receipt Date: 20160122
  Transmission Date: 20160526
  Serious: Yes (Death, Hospitalization, Other)
  Sender: FDA-Public Use
  Company Number: JP-009507513-1510JPN005916

PATIENT
  Age: 74 Year
  Sex: Male
  Weight: 63.2 kg

DRUGS (19)
  1. LANSOPRAZOLE. [Concomitant]
     Active Substance: LANSOPRAZOLE
     Dosage: DAILY DOSAGE UNKNOWN
     Route: 065
  2. TEMODAL [Suspect]
     Active Substance: TEMOZOLOMIDE
     Dosage: 120 MG, QD (DIVIDED DOSE FREQUENCY UNKNOWN)
     Route: 048
     Dates: start: 20150521, end: 20150701
  3. TEMODAL [Suspect]
     Active Substance: TEMOZOLOMIDE
     Dosage: 260 MG, QD (DIVIDED DOSE FREQUENCY UNKNOWN)
     Route: 048
     Dates: start: 20150731, end: 20150804
  4. DECADRON [Suspect]
     Active Substance: DEXAMETHASONE
     Dosage: 0.5 MG, QD (DIVIDED DOSE FREQUENCY UNKNOWN)
     Route: 065
     Dates: start: 20150702, end: 20150802
  5. DECADRON [Suspect]
     Active Substance: DEXAMETHASONE
     Dosage: 4 MG, QD (DIVIDED DOSE FREQUENCY UNKNOWN)
     Route: 065
     Dates: start: 20150803
  6. AMLODIPINE BESYLATE. [Concomitant]
     Active Substance: AMLODIPINE BESYLATE
     Dosage: DAILY DOSAGE UNKNOWN
     Route: 048
  7. NASIROBIN [Concomitant]
     Dosage: DAILY DOSAGE UNKNOWN
     Route: 048
  8. ZOFRAN [Concomitant]
     Active Substance: ONDANSETRON HYDROCHLORIDE
     Dosage: DAILY DOSAGE UNKNOWN
     Route: 065
  9. ISOBIDE [Concomitant]
     Active Substance: ISOSORBIDE
     Dosage: DAILY DOSAGE UNKNOWN
     Route: 048
  10. FEXOFENADINE HYDROCHLORIDE. [Concomitant]
     Active Substance: FEXOFENADINE HYDROCHLORIDE
     Dosage: DAILY DOSAGE UNKNOWN
     Route: 048
  11. KEPPRA [Concomitant]
     Active Substance: LEVETIRACETAM
     Dosage: DAILY DOSAGE UNKNOWN
     Route: 065
  12. HERBAL NOS [Concomitant]
     Active Substance: HERBALS
     Dosage: DAILY DOSAGE UNKNOWN
     Route: 048
  13. SULFAMETHOXAZOLE AND TRIMETHOPRIM [Concomitant]
     Active Substance: SULFAMETHOXAZOLE\TRIMETHOPRIM
     Dosage: DAILY DOSAGE UNKNOWN
     Route: 048
  14. DECADRON [Suspect]
     Active Substance: DEXAMETHASONE
     Dosage: 1.5 MG, QD (DIVIDED DOSE FREQUENCY UNKNOWN)
     Route: 065
     Dates: start: 20150618, end: 20150701
  15. LEVOTHYROXINE SODIUM. [Concomitant]
     Active Substance: LEVOTHYROXINE SODIUM
     Dosage: DAILY DOSAGE UNKNOWN
     Route: 048
  16. TANATRIL [Concomitant]
     Active Substance: IMIDAPRIL
     Dosage: DAILY DOSAGE UNKNOWN
     Route: 048
  17. LUPRAC [Concomitant]
     Active Substance: TORSEMIDE
     Dosage: DAILY DOSAGE UNKNOWN
     Route: 048
  18. TEMODAL [Suspect]
     Active Substance: TEMOZOLOMIDE
     Dosage: 260 MG, QD (DIVIDED DOSE FREQUENCY UNKNOWN)
     Route: 048
     Dates: start: 20150828, end: 20150901
  19. DECADRON [Suspect]
     Active Substance: DEXAMETHASONE
     Indication: BRAIN OEDEMA
     Dosage: 2 MG, QD (DIVIDED DOSE FREQUENCY UNKNOWN)
     Route: 065
     Dates: start: 20150528, end: 20150617

REACTIONS (4)
  - Hepatic function abnormal [Not Recovered/Not Resolved]
  - Pneumocystis jirovecii pneumonia [Fatal]
  - Aphasia [Unknown]
  - Cytomegalovirus infection [Fatal]

NARRATIVE: CASE EVENT DATE: 20150724
